FAERS Safety Report 25231409 (Version 1)
Quarter: 2025Q2

REPORT INFORMATION
  Report Type: Spontaneous
  Country: MY (occurrence: MY)
  Receive Date: 20250423
  Receipt Date: 20250423
  Transmission Date: 20250717
  Serious: Yes (Hospitalization)
  Sender: MERCK SHARP & DOHME LLC
  Company Number: MY-009507513-2276904

PATIENT
  Age: 40 Year
  Sex: Male
  Weight: 75 kg

DRUGS (5)
  1. SUGAMMADEX SODIUM [Suspect]
     Active Substance: SUGAMMADEX SODIUM
  2. ROCURONIUM BROMIDE [Suspect]
     Active Substance: ROCURONIUM BROMIDE
  3. MEPERIDINE [Concomitant]
     Active Substance: MEPERIDINE
  4. FENTANYL [Concomitant]
     Active Substance: FENTANYL
  5. DYNASTAT [Concomitant]
     Active Substance: PARECOXIB SODIUM

REACTIONS (2)
  - Therapeutic product effect prolonged [Unknown]
  - Product contamination chemical [Unknown]
